FAERS Safety Report 9026632 (Version 1)
Quarter: 2013Q1

REPORT INFORMATION
  Report Type: Spontaneous
  Country: US (occurrence: None)
  Receive Date: 20130107
  Receipt Date: 20130107
  Transmission Date: 20140127
  Serious: No
  Sender: FDA-Public Use
  Company Number: 1212MNE008481

PATIENT
  Age: 3 Year
  Sex: Male

DRUGS (2)
  1. CEDAX (CEFTIBUTEN) ORAL SUSPENSION, 60 ML [Suspect]
     Indication: OTITIS MEDIA ACUTE
     Route: 048
     Dates: start: 20121129, end: 20121201
  2. DEXAMETHASONE [Concomitant]

REACTIONS (1)
  - Dermatitis allergic [None]
